FAERS Safety Report 5508877-3 (Version None)
Quarter: 2007Q4

REPORT INFORMATION
  Report Type: 
  Country: None (occurrence: None)
  Receive Date: 20071105
  Receipt Date: 20071105
  Transmission Date: 20080405
  Serious: No
  Sender: FDA-Public Use
  Company Number: None

PATIENT
  Age: 30 Year
  Sex: Female
  Weight: 58.0604 kg

DRUGS (1)
  1. MIRENA [Suspect]
     Dates: start: 20070724

REACTIONS (3)
  - COMPLICATION OF DEVICE INSERTION [None]
  - IUD MIGRATION [None]
  - PAIN [None]
